FAERS Safety Report 16312974 (Version 1)
Quarter: 2019Q2

REPORT INFORMATION
  Report Type: Other
  Country: CA (occurrence: CA)
  Receive Date: 20190515
  Receipt Date: 20190515
  Transmission Date: 20190711
  Serious: Yes (Hospitalization)
  Sender: FDA-Public Use
  Company Number: CA-APOTEX-2019AP013669

PATIENT
  Age: 3 Year
  Sex: Male

DRUGS (3)
  1. SALBUTAMOL [Suspect]
     Active Substance: ALBUTEROL
     Indication: RESPIRATORY DISTRESS
     Dosage: UNK (INHALATION)
     Route: 055
  2. RISPERIDONE. [Suspect]
     Active Substance: RISPERIDONE
     Indication: PRODUCT USED FOR UNKNOWN INDICATION
     Dosage: UNK
     Route: 065
  3. PEDIAPRED [Suspect]
     Active Substance: PREDNISOLONE SODIUM PHOSPHATE
     Indication: RESPIRATORY DISTRESS
     Dosage: 14.0 MG, QD
     Route: 048

REACTIONS (5)
  - Dysarthria [Recovered/Resolved]
  - Lethargy [Recovered/Resolved]
  - Drooling [Recovered/Resolved]
  - Sedation [Recovered/Resolved]
  - Swollen tongue [Recovered/Resolved]
